FAERS Safety Report 21179549 (Version 1)
Quarter: 2022Q3

REPORT INFORMATION
  Report Type: Spontaneous
  Country: JP (occurrence: JP)
  Receive Date: 20220805
  Receipt Date: 20220805
  Transmission Date: 20221026
  Serious: Yes (Hospitalization, Other)
  Sender: FDA-Public Use
  Company Number: JP-TAKEDA-2022TUS033337

PATIENT
  Age: 47 Year
  Sex: Male
  Weight: 74 kg

DRUGS (4)
  1. LIALDA [Suspect]
     Active Substance: MESALAMINE
     Indication: Colitis ulcerative
     Dosage: 4800 MILLIGRAM, QD
     Route: 048
     Dates: start: 20191224, end: 20200218
  2. BUDESONIDE [Concomitant]
     Active Substance: BUDESONIDE
     Dosage: 48 MILLIGRAM, QD
     Route: 054
     Dates: start: 20191224
  3. OLOPATADINE [Concomitant]
     Active Substance: OLOPATADINE
     Indication: Seasonal allergy
     Dosage: UNK
     Route: 048
     Dates: start: 20200218
  4. BETAMETHASONE\DEXCHLORPHENIRAMINE MALEATE [Concomitant]
     Active Substance: BETAMETHASONE\DEXCHLORPHENIRAMINE MALEATE
     Indication: Seasonal allergy
     Dosage: UNK
     Route: 048
     Dates: start: 20200218

REACTIONS (2)
  - Colitis ulcerative [Unknown]
  - Erythema multiforme [Recovering/Resolving]

NARRATIVE: CASE EVENT DATE: 20200208
